FAERS Safety Report 9772341 (Version 3)
Quarter: 2013Q4

REPORT INFORMATION
  Report Type: Spontaneous
  Country: US (occurrence: US)
  Receive Date: 20131219
  Receipt Date: 20131230
  Transmission Date: 20140711
  Serious: Yes (Congenital Anomaly)
  Sender: FDA-Public Use
  Company Number: US-UCBSA-106331

PATIENT
  Sex: 0

DRUGS (1)
  1. CIMZIA [Suspect]
     Route: 064

REACTIONS (2)
  - Exomphalos [Unknown]
  - Foetal exposure during pregnancy [Recovered/Resolved]
